FAERS Safety Report 18975624 (Version 8)
Quarter: 2021Q3

REPORT INFORMATION
  Report Type: Report from Study
  Country: US (occurrence: US)
  Receive Date: 20210306
  Receipt Date: 20210717
  Transmission Date: 20211014
  Serious: Yes (Hospitalization)
  Sender: FDA-Public Use
  Company Number: US-ROCHE-2783731

PATIENT
  Age: 86 Year
  Sex: Male
  Weight: 55.9 kg

DRUGS (29)
  1. ATENOLOL. [Concomitant]
     Active Substance: ATENOLOL
     Indication: HYPERTENSION
     Route: 048
     Dates: start: 20210320
  2. CEFOXITIN [Concomitant]
     Active Substance: CEFOXITIN SODIUM
     Indication: PROPHYLAXIS
     Route: 042
     Dates: start: 20210303, end: 20210303
  3. SUGAMMADEX [Concomitant]
     Active Substance: SUGAMMADEX
     Route: 042
     Dates: start: 20210303, end: 20210303
  4. HYDRALAZINE [Concomitant]
     Active Substance: HYDRALAZINE HYDROCHLORIDE
     Indication: HYPERTENSION
     Route: 042
     Dates: start: 20210304, end: 20210307
  5. SIMETHICONE (DIMETHICONE) [Concomitant]
     Active Substance: DIMETHICONE
     Indication: FLATULENCE
     Route: 048
     Dates: start: 20210304, end: 20210307
  6. BENZOCAINE. [Concomitant]
     Active Substance: BENZOCAINE
     Indication: HYPOAESTHESIA ORAL
     Route: 061
     Dates: start: 20210302, end: 20210305
  7. ROCURONIUM [Concomitant]
     Active Substance: ROCURONIUM BROMIDE
     Route: 042
     Dates: start: 20210303, end: 20210303
  8. TAMSULOSIN [Concomitant]
     Active Substance: TAMSULOSIN
     Indication: BENIGN PROSTATIC HYPERPLASIA
     Route: 048
     Dates: start: 20210320
  9. TRAMADOL. [Concomitant]
     Active Substance: TRAMADOL
     Indication: ABDOMINAL PAIN UPPER
     Route: 048
     Dates: start: 20210226, end: 20210320
  10. INSULIN REGULAR [Concomitant]
     Active Substance: INSULIN NOS
     Indication: HYPERGLYCAEMIA
     Dosage: 10 U
     Route: 058
     Dates: start: 20210304, end: 20210304
  11. HEPARIN [Concomitant]
     Active Substance: HEPARIN SODIUM
     Indication: PROPHYLAXIS
     Dosage: 500 U
     Route: 058
     Dates: start: 20210305, end: 20210305
  12. NORCO [Concomitant]
     Active Substance: ACETAMINOPHEN\HYDROCODONE BITARTRATE
     Route: 048
     Dates: start: 20210303, end: 20210305
  13. ALENDRONATE [Concomitant]
     Active Substance: ALENDRONATE SODIUM
     Indication: OSTEOPOROSIS
     Route: 048
     Dates: start: 20210320
  14. LOSARTAN. [Concomitant]
     Active Substance: LOSARTAN
     Indication: HYPERTENSION
     Route: 048
     Dates: start: 20210218, end: 20210320
  15. DIPRIVAN [Concomitant]
     Active Substance: PROPOFOL
     Route: 042
     Dates: start: 20210303, end: 20210303
  16. COLACE [Concomitant]
     Active Substance: DOCUSATE SODIUM
     Indication: CONSTIPATION
     Route: 048
     Dates: start: 20210303, end: 20210307
  17. MILK OF MAGNESIA [Concomitant]
     Active Substance: MAGNESIUM HYDROXIDE
     Indication: CONSTIPATION
     Route: 048
     Dates: start: 20210305, end: 20210305
  18. ATEZOLIZUMAB. [Suspect]
     Active Substance: ATEZOLIZUMAB
     Indication: HEPATOCELLULAR CARCINOMA
     Dosage: DOSE LAST STUDY DRUG ADMIN PRIOR AE IS 1200 MG
     Route: 041
     Dates: start: 20210219
  19. BEVACIZUMAB. [Suspect]
     Active Substance: BEVACIZUMAB
     Indication: HEPATOCELLULAR CARCINOMA
     Route: 042
     Dates: start: 20210219
  20. MELATONIN [Concomitant]
     Active Substance: MELATONIN
     Indication: INSOMNIA
     Route: 048
     Dates: start: 20210320
  21. SPIRONOLACTONE. [Concomitant]
     Active Substance: SPIRONOLACTONE
     Indication: OEDEMA PERIPHERAL
     Route: 048
     Dates: start: 20210217
  22. MIDAZOLAM. [Concomitant]
     Active Substance: MIDAZOLAM
     Route: 042
     Dates: start: 20210303, end: 20210303
  23. EPHEDRINE. [Concomitant]
     Active Substance: EPHEDRINE
     Route: 042
     Dates: start: 20210303, end: 20210303
  24. EPHEDRINE. [Concomitant]
     Active Substance: EPHEDRINE
     Route: 042
     Dates: start: 20210303, end: 20210303
  25. ANCEF (UNITED STATES) [Concomitant]
     Indication: PROPHYLAXIS
     Route: 042
     Dates: start: 20210303, end: 20210304
  26. DILAUDID [Concomitant]
     Active Substance: HYDROMORPHONE HYDROCHLORIDE
     Route: 042
     Dates: start: 20210303, end: 20210306
  27. DEXTROMETHORPHAN;GUAIFENESIN [Concomitant]
     Active Substance: DEXTROMETHORPHAN\GUAIFENESIN
     Indication: COUGH
     Route: 048
     Dates: start: 20210307, end: 20210307
  28. LIDOCAINE VISCOUS [Concomitant]
     Active Substance: LIDOCAINE HYDROCHLORIDE
     Route: 061
     Dates: start: 20210302, end: 20210302
  29. LIDOCAINE. [Concomitant]
     Active Substance: LIDOCAINE
     Indication: PROCEDURAL PAIN
     Dosage: PATCH
     Route: 061
     Dates: start: 20200304, end: 20210307

REACTIONS (1)
  - Small intestinal obstruction [Recovered/Resolved]

NARRATIVE: CASE EVENT DATE: 20210302
